FAERS Safety Report 4422462-6 (Version None)
Quarter: 2004Q3

REPORT INFORMATION
  Report Type: 
  Country: None (occurrence: None)
  Receive Date: 20040810
  Receipt Date: 20040728
  Transmission Date: 20050211
  Serious: Yes (Hospitalization)
  Sender: FDA-Public Use
  Company Number: JP-JNJFOC-20040608203

PATIENT
  Sex: Male

DRUGS (9)
  1. ITRIZOLE [Suspect]
     Route: 049
  2. ITRIZOLE [Suspect]
     Indication: ONYCHOMYCOSIS
     Route: 049
  3. NORVASC [Concomitant]
     Indication: HYPERTENSION
     Route: 049
  4. BEZAFIBRATE [Concomitant]
     Route: 049
  5. URINORM [Concomitant]
     Indication: GOUT
     Route: 049
  6. RITODRINE HYDROCHLORIDE [Concomitant]
     Route: 049
  7. FAMOTIDINE [Concomitant]
     Route: 049
  8. TEPRENONE [Concomitant]
     Route: 049
  9. POTASSIUM CITRATE SODIUM CITRATE [Concomitant]
     Indication: GOUT
     Route: 049

REACTIONS (2)
  - ERYTHEMA MULTIFORME [None]
  - GAMMA-GLUTAMYLTRANSFERASE INCREASED [None]
